FAERS Safety Report 4633185-2 (Version None)
Quarter: 2005Q2

REPORT INFORMATION
  Report Type: 
  Country: None (occurrence: None)
  Receive Date: 20050408
  Receipt Date: 20050325
  Transmission Date: 20051028
  Serious: Yes (Life-Threatening, Hospitalization)
  Sender: FDA-Public Use
  Company Number: DSA_26203_2005

PATIENT
  Age: 76 Year
  Sex: Female

DRUGS (1)
  1. ENALAPRIL MALEATE [Suspect]
     Indication: HYPERTENSION
     Dosage: 20 MG Q DAY PO
     Route: 048
     Dates: end: 20041214

REACTIONS (3)
  - HYPOVOLAEMIC SHOCK [None]
  - INTESTINAL OBSTRUCTION [None]
  - RENAL FAILURE ACUTE [None]
